FAERS Safety Report 4269487-1 (Version None)
Quarter: 2004Q1

REPORT INFORMATION
  Report Type: 
  Country: None (occurrence: None)
  Receive Date: 20040113
  Receipt Date: 20040106
  Transmission Date: 20041129
  Serious: Yes (Other)
  Sender: FDA-Public Use
  Company Number: US-ROCHE-355306

PATIENT
  Age: 63 Year
  Sex: Male
  Weight: 72.6 kg

DRUGS (9)
  1. CELLCEPT [Suspect]
     Indication: DRUG USE FOR UNKNOWN INDICATION
     Route: 065
     Dates: start: 20030908
  2. EPOGEN [Suspect]
     Route: 058
     Dates: end: 20030909
  3. DAPSONE [Suspect]
     Indication: DRUG USE FOR UNKNOWN INDICATION
     Route: 065
     Dates: start: 20030908, end: 20031112
  4. TACROLIMUS [Concomitant]
     Dates: start: 20030908
  5. PREDNISONE [Concomitant]
     Dates: start: 20030908
  6. CLOTRIMAZOLE [Concomitant]
     Dates: start: 20030908
  7. FAMOTIDINE [Concomitant]
     Dates: start: 20030908
  8. METOPROLOL [Concomitant]
     Dates: start: 20030908
  9. ASPIRIN [Concomitant]
     Dates: start: 20030908

REACTIONS (7)
  - APLASIA PURE RED CELL [None]
  - BLOOD CULTURE POSITIVE [None]
  - BONE MARROW DEPRESSION [None]
  - CHOLECYSTECTOMY [None]
  - CULTURE WOUND POSITIVE [None]
  - PARVOVIRUS B19 SEROLOGY POSITIVE [None]
  - RENAL TRANSPLANT [None]
